FAERS Safety Report 8339866-1 (Version None)
Quarter: 2012Q2

REPORT INFORMATION
  Report Type: 
  Country: None (occurrence: None)
  Receive Date: 20120507
  Receipt Date: 20120502
  Transmission Date: 20120825
  Serious: Yes (Hospitalization)
  Sender: FDA-Public Use
  Company Number: FR-PFIZER INC-2012107259

PATIENT
  Age: 60 Year
  Sex: Male

DRUGS (9)
  1. PANTOPRAZOLE [Concomitant]
     Dosage: UNK
  2. CRESTOR [Concomitant]
     Dosage: UNK
  3. TAZOBACTAM [Suspect]
     Indication: ANTIBIOTIC THERAPY
     Dosage: 1 DF, 3X/DAY
     Route: 042
     Dates: start: 20120326, end: 20120327
  4. ASPIRIN [Concomitant]
     Dosage: UNK
  5. AUGMENTIN [Concomitant]
     Indication: ANTIBIOTIC THERAPY
     Dosage: UNK
     Dates: start: 20120323
  6. OFLOXACIN [Concomitant]
     Indication: ANTIBIOTIC THERAPY
     Dosage: UNK
     Dates: start: 20120323
  7. CIPROFLOXACIN HYDROCHLORIDE [Suspect]
     Indication: ANTIBIOTIC THERAPY
     Dosage: 1 DF, 1X/DAY
     Route: 042
     Dates: start: 20120326, end: 20120327
  8. EFFIENT [Concomitant]
     Dosage: UNK
  9. KERLONE [Concomitant]
     Dosage: UNK

REACTIONS (2)
  - CONFUSIONAL STATE [None]
  - GRAND MAL CONVULSION [None]
